FAERS Safety Report 14407140 (Version 1)
Quarter: 2018Q1

REPORT INFORMATION
  Report Type: Spontaneous
  Country: US (occurrence: US)
  Receive Date: 20180118
  Receipt Date: 20180118
  Transmission Date: 20180509
  Serious: Yes (Other)
  Sender: FDA-Public Use
  Company Number: US-ENDO PHARMACEUTICALS INC-2018-014292

PATIENT

DRUGS (1)
  1. HYDROCORTISONE TABLETS [Suspect]
     Active Substance: HYDROCORTISONE
     Indication: PRODUCT USED FOR UNKNOWN INDICATION
     Dosage: 22 MG, UNKNOWN
     Route: 065

REACTIONS (17)
  - Seizure [Unknown]
  - Migraine [Unknown]
  - Abdominal pain [Unknown]
  - Unevaluable event [Unknown]
  - Paraesthesia [Unknown]
  - Loss of consciousness [Unknown]
  - Asthenia [Unknown]
  - Bedridden [Unknown]
  - Erythema [Unknown]
  - Hypertension [Unknown]
  - Bronchitis [Unknown]
  - Gait disturbance [Unknown]
  - Influenza like illness [Unknown]
  - Arthralgia [Unknown]
  - Swelling face [Unknown]
  - Headache [Unknown]
  - Hypoaesthesia [Unknown]
